FAERS Safety Report 15306738 (Version 2)
Quarter: 2018Q4

REPORT INFORMATION
  Report Type: Spontaneous
  Country: US (occurrence: US)
  Receive Date: 20180822
  Receipt Date: 20180907
  Transmission Date: 20190204
  Serious: Yes (Hospitalization)
  Sender: FDA-Public Use
  Company Number: US-AUROBINDO-AUR-APU-2018-042013

PATIENT
  Sex: Female
  Weight: 74.83 kg

DRUGS (1)
  1. OLMESARTAN MEDOXOMIL+HYDROCHLOROTHIAZIDE TABLETS 40MG/25MG [Suspect]
     Active Substance: HYDROCHLOROTHIAZIDE\OLMESARTAN MEDOXOMIL
     Indication: HYPERTENSION
     Dosage: 1 DOSAGE FORM, DAILY
     Route: 065

REACTIONS (1)
  - Hypotension [Recovered/Resolved]
